FAERS Safety Report 5238145-9 (Version None)
Quarter: 2007Q1

REPORT INFORMATION
  Report Type: 
  Country: None (occurrence: None)
  Receive Date: 20070215
  Receipt Date: 20070206
  Transmission Date: 20070707
  Serious: Yes (Disabling, Other)
  Sender: FDA-Public Use
  Company Number: BE-ABBOTT-06P-013-0353445-00

PATIENT
  Sex: Female

DRUGS (1)
  1. HUMIRA [Suspect]
     Indication: RHEUMATOID ARTHRITIS
     Dates: start: 20050613

REACTIONS (3)
  - BASOSQUAMOUS CARCINOMA [None]
  - CYSTITIS INTERSTITIAL [None]
  - RASH [None]
